FAERS Safety Report 23115654 (Version 1)
Quarter: 2023Q4

REPORT INFORMATION
  Report Type: Spontaneous
  Country: GB (occurrence: GB)
  Receive Date: 20231027
  Receipt Date: 20231027
  Transmission Date: 20240110
  Serious: Yes (Hospitalization)
  Sender: FDA-Public Use
  Company Number: GB-SANDOZ-SDZ2023GB036896

PATIENT
  Sex: Female

DRUGS (3)
  1. TACROLIMUS [Suspect]
     Active Substance: TACROLIMUS
     Indication: Product used for unknown indication
     Dosage: 7 TABLETS ONCE A DAY (3 TABLETS IN THE MORNING AND 4 IN THE EVENING)
     Route: 065
  2. AZATHIOPRINE [Suspect]
     Active Substance: AZATHIOPRINE
     Indication: Transplant rejection
     Dosage: 3 TABLETS ONCE A DAY, STRENGTH-25MG
     Route: 048
     Dates: start: 20210306
  3. PREDNISOLONE [Suspect]
     Active Substance: PREDNISOLONE
     Indication: Product used for unknown indication
     Dosage: 7.5 MG, 1 TABLET
     Route: 065

REACTIONS (2)
  - Hospitalisation [Unknown]
  - Overdose [Unknown]
